FAERS Safety Report 21084797 (Version 4)
Quarter: 2022Q3

REPORT INFORMATION
  Report Type: Report from Study
  Country: CL (occurrence: CL)
  Receive Date: 20220714
  Receipt Date: 20220928
  Transmission Date: 20221027
  Serious: Yes (Death, Hospitalization, Other)
  Sender: FDA-Public Use
  Company Number: CL-BRISTOL-MYERS SQUIBB COMPANY-2022-071106

PATIENT
  Age: 70 Year
  Sex: Male
  Weight: 56 kg

DRUGS (26)
  1. NIVOLUMAB [Suspect]
     Active Substance: NIVOLUMAB
     Indication: Non-small cell lung cancer
     Dosage: PRIOR TO THE ONSET OF THE EVENT, LAST DOSE ON 31-MAY-2022.?DOSE DELAYED.
     Route: 042
     Dates: start: 20211203
  2. CARBOPLATIN [Suspect]
     Active Substance: CARBOPLATIN
     Indication: Non-small cell lung cancer
     Dosage: PRIOR TO THE ONSET OF THE EVENT, LAST DOSE OF 471 MG ON 25-FEB-2022.?DOSE DELAYED.
     Route: 065
     Dates: start: 20211203
  3. PEMETREXED DISODIUM [Suspect]
     Active Substance: PEMETREXED DISODIUM
     Indication: Non-small cell lung cancer
     Dosage: PRIOR TO THE ONSET OF THE EVENT, LAST DOSE OF 790 MG ON 31-MAY-2022.?DOSE DELAYED.
     Route: 065
     Dates: start: 20211203
  4. DEXAMETHASONE [Concomitant]
     Active Substance: DEXAMETHASONE
     Indication: Product used for unknown indication
     Dosage: AS NEEDED
     Route: 048
     Dates: start: 20220226
  5. DEXAMETHASONE [Concomitant]
     Active Substance: DEXAMETHASONE
  6. BETAMETHASONE [Concomitant]
     Active Substance: BETAMETHASONE
     Indication: Product used for unknown indication
     Dosage: AS NEEDED
     Route: 042
     Dates: start: 20211203
  7. BETAMETHASONE [Concomitant]
     Active Substance: BETAMETHASONE
  8. TRAMADOL [Concomitant]
     Active Substance: TRAMADOL
     Indication: Product used for unknown indication
     Dosage: 3 TIMES PER DAY
     Route: 048
     Dates: start: 20210201
  9. TRAMADOL [Concomitant]
     Active Substance: TRAMADOL
  10. IPRATROPIUM BROMIDE [Concomitant]
     Active Substance: IPRATROPIUM BROMIDE
     Indication: Product used for unknown indication
     Dosage: 1 DF= 2 UNIT NOS EVERY 6 HOURS
     Route: 055
     Dates: start: 20220119
  11. IPRATROPIUM BROMIDE [Concomitant]
     Active Substance: IPRATROPIUM BROMIDE
  12. LEVODROPROPIZINE [Concomitant]
     Active Substance: LEVODROPROPIZINE
     Indication: Product used for unknown indication
     Dosage: 1 DF= 5 UNIT NOS EVERY 6 HOURS
     Route: 048
     Dates: start: 20220223
  13. LEVODROPROPIZINE [Concomitant]
     Active Substance: LEVODROPROPIZINE
  14. FOLIC ACID [Concomitant]
     Active Substance: FOLIC ACID
     Indication: Product used for unknown indication
     Dosage: AS NEEDED
     Route: 048
     Dates: start: 20220225
  15. FOLIC ACID [Concomitant]
     Active Substance: FOLIC ACID
  16. NETUPITANT [Concomitant]
     Active Substance: NETUPITANT
     Indication: Product used for unknown indication
     Dosage: AS NEEDED
     Route: 048
     Dates: start: 20220225
  17. NETUPITANT [Concomitant]
     Active Substance: NETUPITANT
  18. PALONOSETRON [Concomitant]
     Active Substance: PALONOSETRON
     Indication: Product used for unknown indication
     Dosage: AS NEEDED
     Route: 048
     Dates: start: 20220225
  19. PALONOSETRON [Concomitant]
     Active Substance: PALONOSETRON
  20. HEDERA HELIX [Concomitant]
     Active Substance: HEDERA HELIX FLOWERING TWIG\HERBALS
     Indication: Product used for unknown indication
     Dosage: 1 DF= 15 UNIT NOS 3 TIMES PER DAY
     Route: 048
     Dates: start: 20210201
  21. HEDERA HELIX [Concomitant]
     Active Substance: HEDERA HELIX FLOWERING TWIG\HERBALS
  22. LOPERAMIDE [Concomitant]
     Active Substance: LOPERAMIDE
     Indication: Product used for unknown indication
     Dosage: 3 TIMES PER DAY
     Route: 048
     Dates: start: 20211210
  23. LOPERAMIDE [Concomitant]
     Active Substance: LOPERAMIDE
  24. ACETAMINOPHEN [Concomitant]
     Active Substance: ACETAMINOPHEN
     Indication: Product used for unknown indication
     Dosage: 3 TIMES PER DAY
     Route: 048
     Dates: start: 20210201
  25. VITAMIN B12 [Concomitant]
     Active Substance: CYANOCOBALAMIN
     Indication: Product used for unknown indication
     Dosage: AS NEEDED?ONGOING
     Route: 030
     Dates: start: 20220225
  26. FENOTEROL [Concomitant]
     Active Substance: FENOTEROL
     Indication: Product used for unknown indication
     Dosage: 1 DF- 2 UNITS NOS?EVERY 6 HOURS?ONGOING
     Route: 055
     Dates: start: 20220119

REACTIONS (1)
  - Pneumonitis [Fatal]

NARRATIVE: CASE EVENT DATE: 20220707
